FAERS Safety Report 9536518 (Version 1)
Quarter: 2013Q3

REPORT INFORMATION
  Report Type: Spontaneous
  Country: IT (occurrence: IT)
  Receive Date: 20130919
  Receipt Date: 20130919
  Transmission Date: 20140515
  Serious: Yes (Hospitalization)
  Sender: FDA-Public Use
  Company Number: IT-GE HEALTHCARE MEDICAL DIAGNOSTICS-VISP-PR-1309S-0812

PATIENT
  Age: 15 Year
  Sex: Male

DRUGS (4)
  1. VISIPAQUE [Suspect]
     Indication: MEDIASTINAL MASS
     Route: 042
     Dates: start: 20130729, end: 20130729
  2. VISIPAQUE [Suspect]
     Indication: DIAGNOSTIC PROCEDURE
  3. THIOPENTAL [Suspect]
     Indication: MEDIASTINAL MASS
     Route: 042
     Dates: start: 20130729, end: 20130729
  4. LUKASM [Concomitant]

REACTIONS (3)
  - Erythema [Recovering/Resolving]
  - Pruritus [Recovering/Resolving]
  - Rash [Recovering/Resolving]
